FAERS Safety Report 15776936 (Version 4)
Quarter: 2019Q2

REPORT INFORMATION
  Report Type: Spontaneous
  Country: JP (occurrence: JP)
  Receive Date: 20181231
  Receipt Date: 20190409
  Transmission Date: 20190711
  Serious: Yes (Hospitalization, Other)
  Sender: FDA-Public Use
  Company Number: JP-009507513-1809JPN001603J

PATIENT
  Age: 71 Year
  Sex: Male

DRUGS (1)
  1. KEYTRUDA [Suspect]
     Active Substance: PEMBROLIZUMAB
     Indication: NON-SMALL CELL LUNG CANCER
     Dosage: 200 MILLIGRAM, Q3W
     Route: 041
     Dates: start: 20180727, end: 201808

REACTIONS (7)
  - Encephalitis viral [Unknown]
  - Urinary retention [Unknown]
  - Epstein-Barr virus infection [Recovering/Resolving]
  - Meningitis aseptic [Unknown]
  - Neurogenic bladder [Unknown]
  - Benign prostatic hyperplasia [Unknown]
  - Cerebellar ataxia [Recovering/Resolving]

NARRATIVE: CASE EVENT DATE: 201809
